FAERS Safety Report 15334719 (Version 1)
Quarter: 2018Q3

REPORT INFORMATION
  Report Type: Spontaneous
  Country: US (occurrence: US)
  Receive Date: 20180827
  Receipt Date: 20180827
  Transmission Date: 20181010
  Serious: No
  Sender: FDA-Public Use
  Company Number: None

PATIENT
  Sex: Female

DRUGS (8)
  1. CAPECITABINE. [Suspect]
     Active Substance: CAPECITABINE
     Indication: BREAST CANCER FEMALE
     Route: 048
     Dates: start: 20180518
  2. IRON [Concomitant]
     Active Substance: IRON
  3. OMEGA?3 ACIDS [Concomitant]
     Active Substance: OMEGA-3 FATTY ACIDS
  4. LISINOPRIL. [Concomitant]
     Active Substance: LISINOPRIL
  5. LANTUS [Concomitant]
     Active Substance: INSULIN GLARGINE
  6. ASPIRIN. [Concomitant]
     Active Substance: ASPIRIN
  7. VICTOZA [Concomitant]
     Active Substance: LIRAGLUTIDE
  8. CAUDET [Concomitant]

REACTIONS (3)
  - Skin exfoliation [None]
  - Diarrhoea [None]
  - Vomiting [None]
